FAERS Safety Report 11632751 (Version 4)
Quarter: 2017Q1

REPORT INFORMATION
  Report Type: Spontaneous
  Country: JP (occurrence: JP)
  Receive Date: 20151015
  Receipt Date: 20170314
  Transmission Date: 20170428
  Serious: Yes (Death)
  Sender: FDA-Public Use
  Company Number: PHJP2015JP017661

PATIENT
  Age: 88 Year
  Sex: Male
  Weight: 47 kg

DRUGS (10)
  1. LENDORMIN [Concomitant]
     Active Substance: BROTIZOLAM
     Indication: INSOMNIA
     Dosage: 0.25 MG, QD
     Route: 048
     Dates: start: 20080812, end: 20140926
  2. MAGNESIUM [Concomitant]
     Active Substance: MAGNESIUM
     Indication: CONSTIPATION
     Dosage: 0.5 G, BID
     Route: 048
     Dates: start: 20080812, end: 20141007
  3. THYRADIN S [Concomitant]
     Active Substance: LEVOTHYROXINE SODIUM
     Indication: HYPOTHYROIDISM
     Dosage: 25 UG, BID
     Route: 065
     Dates: start: 20110726, end: 20140926
  4. ALDACTONE [Concomitant]
     Active Substance: SPIRONOLACTONE
     Indication: OEDEMA
     Dosage: 50 MG, QD
     Route: 048
     Dates: start: 20130514, end: 20140926
  5. GLIVEC [Suspect]
     Active Substance: IMATINIB MESYLATE
     Indication: GASTROINTESTINAL STROMAL TUMOUR
     Dosage: 100 MG, QD
     Route: 048
     Dates: start: 20110721, end: 20110809
  6. PROTERNOL S [Concomitant]
     Indication: CARDIAC FAILURE
     Dosage: 15 MG, TID
     Route: 048
     Dates: start: 20110510, end: 20140926
  7. LASIX [Concomitant]
     Active Substance: FUROSEMIDE
     Indication: OEDEMA DUE TO CARDIAC DISEASE
     Dosage: 60 MG, QD
     Route: 048
     Dates: start: 20071220, end: 20140926
  8. TAKEPRON [Concomitant]
     Active Substance: LANSOPRAZOLE
     Indication: GASTROOESOPHAGEAL REFLUX DISEASE
     Dosage: 15 MG, QD
     Route: 048
     Dates: start: 20080812, end: 20140926
  9. GLIVEC [Suspect]
     Active Substance: IMATINIB MESYLATE
     Dosage: 50 MG, QD
     Route: 048
     Dates: start: 20110810, end: 20140926
  10. WARFARIN [Concomitant]
     Active Substance: WARFARIN
     Indication: ATRIAL FIBRILLATION
     Dosage: 2 MG, QD
     Route: 048
     Dates: start: 20140924, end: 20140926

REACTIONS (5)
  - Atrial thrombosis [Fatal]
  - Therapeutic response decreased [Unknown]
  - Cardiac failure [Fatal]
  - Chest pain [Fatal]
  - Eczema [Recovering/Resolving]

NARRATIVE: CASE EVENT DATE: 20110810
